FAERS Safety Report 5027579-3 (Version None)
Quarter: 2006Q2

REPORT INFORMATION
  Report Type: 
  Country: None (occurrence: None)
  Receive Date: 20060616
  Receipt Date: 20060425
  Transmission Date: 20061013
  Serious: Yes (Other)
  Sender: FDA-Public Use
  Company Number: US-AMGEN-STX177477

PATIENT
  Sex: Female
  Weight: 69.9 kg

DRUGS (11)
  1. ENBREL [Suspect]
     Indication: RHEUMATOID ARTHRITIS
     Route: 058
     Dates: start: 20040115, end: 20060410
  2. METHOTREXATE [Concomitant]
     Dates: start: 19970915
  3. DETROL [Concomitant]
  4. FORTEO [Concomitant]
  5. ESTRADIOL [Concomitant]
  6. VITAMIN B12 [Concomitant]
  7. AMBIEN [Concomitant]
  8. CALCIUM GLUCONATE [Concomitant]
  9. LORTAB [Concomitant]
  10. XANAX [Concomitant]
  11. MULTIVITAMIN [Concomitant]

REACTIONS (5)
  - CEREBRAL ISCHAEMIA [None]
  - COGNITIVE DISORDER [None]
  - DEMYELINATION [None]
  - OPTIC NERVE DISORDER [None]
  - VISION BLURRED [None]
